FAERS Safety Report 16912418 (Version 1)
Quarter: 2019Q4

REPORT INFORMATION
  Report Type: Spontaneous
  Country: US (occurrence: US)
  Receive Date: 20191014
  Receipt Date: 20191014
  Transmission Date: 20200122
  Serious: No
  Sender: FDA-Public Use
  Company Number: US-AMGEN INC.-USASP2019169327

PATIENT

DRUGS (2)
  1. ERENUMAB [Suspect]
     Active Substance: ERENUMAB
     Indication: MIGRAINE
     Dosage: UNK
     Route: 065
  2. ERENUMAB [Suspect]
     Active Substance: ERENUMAB
     Indication: POSTURAL ORTHOSTATIC TACHYCARDIA SYNDROME

REACTIONS (2)
  - Constipation [Unknown]
  - Drug ineffective [Unknown]
